FAERS Safety Report 7132918-3 (Version None)
Quarter: 2010Q4

REPORT INFORMATION
  Report Type: 
  Country: None (occurrence: None)
  Receive Date: 20101202
  Receipt Date: 20101119
  Transmission Date: 20110411
  Serious: Yes (Other)
  Sender: FDA-Public Use
  Company Number: US-PFIZER INC-2010153671

PATIENT
  Sex: Male
  Weight: 68.027 kg

DRUGS (3)
  1. NEURONTIN [Suspect]
     Indication: PAIN
     Dosage: 800 MG, 4X/DAY
     Route: 048
  2. NEURONTIN [Suspect]
     Indication: MULTIPLE SCLEROSIS
  3. TRAZODONE [Concomitant]
     Dosage: UNK

REACTIONS (3)
  - BLOOD CHOLESTEROL INCREASED [None]
  - DRUG INEFFECTIVE [None]
  - HYPOTHALAMO-PITUITARY DISORDER [None]
